FAERS Safety Report 5018268-X (Version None)
Quarter: 2006Q2

REPORT INFORMATION
  Report Type: 
  Country: None (occurrence: None)
  Receive Date: 20060530
  Receipt Date: 20060515
  Transmission Date: 20061013
  Serious: Yes (Death, Other)
  Sender: FDA-Public Use
  Company Number: 2006053777

PATIENT
  Age: 67 Year
  Sex: Male
  Weight: 62 kg

DRUGS (4)
  1. IRINOTECAN HCL [Suspect]
     Indication: COLON CANCER
     Dosage: 80 MG/M*2 (80 MG/M*2, ONE DAY), INTRAVENOUS
     Route: 042
     Dates: start: 20060322, end: 20060322
  2. FLUOROURACIL [Suspect]
     Indication: COLON CANCER
     Dosage: 500 MG/M*2 (500 MG/M*2, FOR THREE DAYS), INTRAVENOUS
     Route: 042
     Dates: start: 20060322, end: 20060324
  3. LEUCOVORIN CALCIUM [Suspect]
     Indication: COLON CANCER
     Dosage: 300 MG/M2 (300 MG/M*2, ONE DAY), INTRAVENOUS
     Route: 042
     Dates: start: 20060322, end: 20060322
  4. TANKARU (CALCIUM CARBONATE) [Concomitant]

REACTIONS (12)
  - ACIDOSIS [None]
  - BLOOD CALCIUM INCREASED [None]
  - CONVULSION [None]
  - DEPRESSED LEVEL OF CONSCIOUSNESS [None]
  - DRUG INEFFECTIVE [None]
  - DRUG INTERACTION [None]
  - HEART RATE DECREASED [None]
  - METABOLIC ACIDOSIS [None]
  - MULTI-ORGAN FAILURE [None]
  - NAUSEA [None]
  - RESPIRATORY ARREST [None]
  - SHOCK [None]
